FAERS Safety Report 4289486-3 (Version None)
Quarter: 2004Q1

REPORT INFORMATION
  Report Type: 
  Country: None (occurrence: None)
  Receive Date: 20040206
  Receipt Date: 20040123
  Transmission Date: 20041129
  Serious: Yes (Disabling, Other)
  Sender: FDA-Public Use
  Company Number: 2004-UK-0023UK

PATIENT
  Age: 72 Year
  Sex: Female

DRUGS (4)
  1. MICARDIS [Suspect]
     Indication: HYPERTENSION
     Dosage: 80 MG (NR)
     Route: 048
     Dates: start: 20030811, end: 20031219
  2. SIMVASTATIN (NR) [Concomitant]
  3. VALPROATE SODIUM [Concomitant]
  4. LERCANIDIPINE (LERCANIDIPINE) (NR) [Concomitant]

REACTIONS (2)
  - BLOOD CREATININE INCREASED [None]
  - BLOOD POTASSIUM INCREASED [None]
